FAERS Safety Report 8257450-5 (Version None)
Quarter: 2012Q1

REPORT INFORMATION
  Report Type: 
  Country: None (occurrence: None)
  Receive Date: 20120330
  Receipt Date: 20120330
  Transmission Date: 20120608
  Serious: Yes (Other)
  Sender: FDA-Public Use
  Company Number: None

PATIENT
  Sex: Female
  Weight: 68.0396 kg

DRUGS (1)
  1. ACTONEL [Suspect]
     Indication: OSTEOPENIA
     Dosage: ONE PER WEEK BY MOUTH APPROX 7 YEARS
     Route: 048

REACTIONS (3)
  - BONE DISORDER [None]
  - TONGUE INJURY [None]
  - PALATAL DISORDER [None]
